FAERS Safety Report 4990665-8 (Version None)
Quarter: 2006Q2

REPORT INFORMATION
  Report Type: 
  Country: None (occurrence: None)
  Receive Date: 20060427
  Receipt Date: 20060412
  Transmission Date: 20061013
  Serious: Yes (Hospitalization)
  Sender: FDA-Public Use
  Company Number: US-2006-005064

PATIENT
  Age: 51 Year
  Sex: Female
  Weight: 92.1 kg

DRUGS (1)
  1. BETASERON [Suspect]
     Indication: RELAPSING-REMITTING MULTIPLE SCLEROSIS
     Dosage: 8 MIU, EVERY 2D, SUBCUTANEOUS
     Route: 058
     Dates: start: 20060214

REACTIONS (2)
  - DRUG SPECIFIC ANTIBODY PRESENT [None]
  - TRIGEMINAL NEURALGIA [None]
